FAERS Safety Report 5122745-0 (Version None)
Quarter: 2006Q4

REPORT INFORMATION
  Report Type: 
  Country: None (occurrence: None)
  Receive Date: 20061004
  Receipt Date: 20060918
  Transmission Date: 20070319
  Serious: Yes (Hospitalization)
  Sender: FDA-Public Use
  Company Number: DSA_28741_2006

PATIENT
  Age: 70 Year
  Sex: Female

DRUGS (7)
  1. ENALAPRIL MALEATE [Suspect]
     Indication: HYPERTENSION
     Dosage: 20 MG PO
     Route: 048
     Dates: end: 20060802
  2. SPIRONOLACTONE [Suspect]
     Indication: HYPERTENSION
     Dosage: 50 MG PO
     Route: 048
     Dates: end: 20060802
  3. ASPIRIN [Concomitant]
  4. CELIPROLOL HCL [Concomitant]
  5. FUROSEMIDE [Concomitant]
  6. METFORMIN HCL [Concomitant]
  7. NICARDIPINE HCL [Concomitant]

REACTIONS (5)
  - ASTHENIA [None]
  - HYPERKALAEMIA [None]
  - METABOLIC ACIDOSIS [None]
  - MUSCULAR WEAKNESS [None]
  - RENAL FAILURE ACUTE [None]
